FAERS Safety Report 11992113 (Version 1)
Quarter: 2016Q1

REPORT INFORMATION
  Report Type: Spontaneous
  Country: US (occurrence: US)
  Receive Date: 20160203
  Receipt Date: 20160203
  Transmission Date: 20160526
  Serious: No
  Sender: FDA-Public Use
  Company Number: US-JNJFOC-20151212629

PATIENT
  Age: 72 Year
  Sex: Female
  Weight: 73.03 kg

DRUGS (3)
  1. TYLENOL REGULAR STRENGTH [Suspect]
     Active Substance: ACETAMINOPHEN
     Indication: ARTHRITIS
     Dosage: IN THE MORNING AND AT NIGHT.
     Route: 048
     Dates: start: 20151212
  2. CELEBREX [Concomitant]
     Active Substance: CELECOXIB
     Indication: ARTHRITIS
     Dosage: 1X A DAY 200MG
     Route: 065
     Dates: start: 20151112
  3. KLONOPIN [Concomitant]
     Active Substance: CLONAZEPAM
     Indication: ANXIETY
     Route: 065

REACTIONS (6)
  - Lethargy [Recovered/Resolved]
  - Product use issue [Recovered/Resolved]
  - Nervousness [Recovered/Resolved]
  - Product packaging issue [Unknown]
  - Off label use [Recovered/Resolved]
  - Gait disturbance [Recovered/Resolved]

NARRATIVE: CASE EVENT DATE: 20151212
